FAERS Safety Report 6065017-2 (Version None)
Quarter: 2009Q1

REPORT INFORMATION
  Report Type: 
  Country: None (occurrence: None)
  Receive Date: 20090204
  Receipt Date: 20090203
  Transmission Date: 20090719
  Serious: Yes (Death, Other)
  Sender: FDA-Public Use
  Company Number: IE-PURDUE-GBR_2009_0004790

PATIENT
  Age: 78 Year
  Sex: Female

DRUGS (1)
  1. OXYNORM 10 MG/ML [Suspect]
     Indication: PAIN
     Dosage: 15 MG, DAILY
     Route: 042

REACTIONS (2)
  - DISEASE PROGRESSION [None]
  - INAPPROPRIATE SCHEDULE OF DRUG ADMINISTRATION [None]
